FAERS Safety Report 22606510 (Version 1)
Quarter: 2023Q2

REPORT INFORMATION
  Report Type: Spontaneous
  Country: US (occurrence: None)
  Receive Date: 20230614
  Receipt Date: 20230614
  Transmission Date: 20230722
  Serious: No
  Sender: FDA-Public Use
  Company Number: None

PATIENT

DRUGS (1)
  1. REPATHA [Suspect]
     Active Substance: EVOLOCUMAB
     Indication: Blood cholesterol increased
     Dates: start: 2022, end: 2023

REACTIONS (9)
  - Oropharyngeal pain [None]
  - Rhinorrhoea [None]
  - Dizziness [None]
  - Balance disorder [None]
  - Fall [None]
  - Back pain [None]
  - Arthralgia [None]
  - Pain in extremity [None]
  - Extremity contracture [None]
